FAERS Safety Report 4939265-6 (Version None)
Quarter: 2006Q1

REPORT INFORMATION
  Report Type: 
  Country: None (occurrence: None)
  Receive Date: 20060306
  Receipt Date: 20060221
  Transmission Date: 20060701
  Serious: Yes (Hospitalization)
  Sender: FDA-Public Use
  Company Number: 2006019514

PATIENT
  Age: 66 Year
  Sex: Female
  Weight: 72 kg

DRUGS (4)
  1. LYRICA [Suspect]
     Indication: NEURALGIA
     Dosage: 300 MG (2 IN 1 D), ORAL
     Route: 048
     Dates: start: 20060103
  2. CIALIS [Suspect]
     Indication: ILL-DEFINED DISORDER
  3. DURAGESIC-100 [Concomitant]
  4. ALL OTHER THERAPEUTIC [Concomitant]

REACTIONS (2)
  - LUNG DISORDER [None]
  - PULMONARY OEDEMA [None]
